FAERS Safety Report 24984237 (Version 1)
Quarter: 2025Q1

REPORT INFORMATION
  Report Type: Spontaneous
  Country: US (occurrence: US)
  Receive Date: 20250219
  Receipt Date: 20250219
  Transmission Date: 20250408
  Serious: Yes (Hospitalization, Other)
  Sender: Norvium Bioscience
  Company Number: US-Norvium Bioscience LLC-079886

PATIENT
  Age: 56 Year
  Sex: Male

DRUGS (1)
  1. AMLODIPINE BESYLATE [Suspect]
     Active Substance: AMLODIPINE BESYLATE
     Indication: Suicide attempt

REACTIONS (6)
  - Hypotension [Unknown]
  - Overdose [Unknown]
  - Acute kidney injury [Unknown]
  - Cholecystitis acute [Unknown]
  - Muscular weakness [Unknown]
  - Tachycardia [Unknown]
